FAERS Safety Report 7983194-0 (Version None)
Quarter: 2011Q4

REPORT INFORMATION
  Report Type: 
  Country: None (occurrence: None)
  Receive Date: 20111215
  Receipt Date: 20111208
  Transmission Date: 20120403
  Serious: Yes (Hospitalization)
  Sender: FDA-Public Use
  Company Number: US-ACTELION-A-US2011-58241

PATIENT

DRUGS (2)
  1. REVATIO [Concomitant]
  2. TRACLEER [Suspect]
     Indication: PULMONARY ARTERIAL HYPERTENSION
     Dosage: UNK
     Route: 048
     Dates: start: 20110818

REACTIONS (5)
  - ENDOSCOPY UPPER GASTROINTESTINAL TRACT [None]
  - SMALL INTESTINAL HAEMORRHAGE [None]
  - TRANSFUSION [None]
  - HAEMOGLOBIN DECREASED [None]
  - ENDOSCOPY LARGE BOWEL [None]
